FAERS Safety Report 6278160-X (Version None)
Quarter: 2009Q3

REPORT INFORMATION
  Report Type: 
  Country: None (occurrence: None)
  Receive Date: 20090720
  Receipt Date: 20090603
  Transmission Date: 20100115
  Serious: Yes (Death)
  Sender: FDA-Public Use
  Company Number: B0577844A

PATIENT
  Age: 55 Year
  Sex: Male

DRUGS (4)
  1. LAMIVUDINE [Suspect]
     Indication: HIV INFECTION
  2. ZIDOVUDINE [Suspect]
     Indication: HIV INFECTION
  3. LOPINAVIR (FORMULATION UNKNOWN) (LOPINAVIR) [Suspect]
     Indication: HIV INFECTION
  4. RITONAVIR [Suspect]
     Indication: HIV INFECTION

REACTIONS (4)
  - APHASIA [None]
  - CONFUSIONAL STATE [None]
  - IMMUNE RECONSTITUTION SYNDROME [None]
  - MUSCULAR WEAKNESS [None]
